FAERS Safety Report 18663995 (Version 3)
Quarter: 2021Q1

REPORT INFORMATION
  Report Type: Report from Study
  Country: None (occurrence: ES)
  Receive Date: 20201225
  Receipt Date: 20210119
  Transmission Date: 20210419
  Serious: Yes (Other)
  Sender: FDA-Public Use
  Company Number: ES-ABBVIE-20K-144-3695754-00

PATIENT
  Age: 64 Year
  Sex: Female

DRUGS (3)
  1. DUODOPA [Suspect]
     Active Substance: CARBIDOPA\LEVODOPA
     Indication: PARKINSON^S DISEASE
     Route: 050
     Dates: start: 20080101, end: 20201218
  2. DUODOPA [Suspect]
     Active Substance: CARBIDOPA\LEVODOPA
  3. DIAZEPAM. [Concomitant]
     Active Substance: DIAZEPAM
     Indication: AGITATION
     Dosage: AT NIGHT
     Route: 048

REACTIONS (10)
  - Embedded device [Unknown]
  - Stoma site discharge [Not Recovered/Not Resolved]
  - Agitation [Not Recovered/Not Resolved]
  - Device dislocation [Unknown]
  - Constipation [Not Recovered/Not Resolved]
  - Device issue [Not Recovered/Not Resolved]
  - Cognitive disorder [Unknown]
  - Stoma site erythema [Not Recovered/Not Resolved]
  - Freezing phenomenon [Unknown]
  - Therapeutic product effect incomplete [Not Recovered/Not Resolved]

NARRATIVE: CASE EVENT DATE: 2020
